FAERS Safety Report 8354972-3 (Version None)
Quarter: 2012Q2

REPORT INFORMATION
  Report Type: 
  Country: None (occurrence: None)
  Receive Date: 20120511
  Receipt Date: 20120504
  Transmission Date: 20120825
  Serious: Yes (Death, Other)
  Sender: FDA-Public Use
  Company Number: MY-CELGENEUS-101-21880-12031202

PATIENT
  Sex: Male

DRUGS (1)
  1. REVLIMID [Suspect]
     Indication: MULTIPLE MYELOMA
     Dosage: 25 MILLIGRAM
     Route: 048
     Dates: start: 20110310, end: 20120130

REACTIONS (4)
  - THROMBOCYTOPENIA [None]
  - ACOUSTIC NEUROMA [None]
  - INFLUENZA [None]
  - TUMOUR HAEMORRHAGE [None]
